FAERS Safety Report 8938243 (Version 1)
Quarter: 2012Q4

REPORT INFORMATION
  Report Type: 
  Country: US (occurrence: US)
  Receive Date: 20121130
  Receipt Date: 20121130
  Transmission Date: 20130627
  Serious: Yes (Hospitalization, Other)
  Sender: FDA-Public Use
  Company Number: US-ELI_LILLY_AND_COMPANY-US201211005756

PATIENT
  Age: 43 None
  Sex: Female
  Weight: 79.37 kg

DRUGS (3)
  1. BYDUREON [Suspect]
     Indication: DIABETES MELLITUS
     Dosage: 2 mg, weekly (1/W)
     Route: 058
     Dates: start: 201202
  2. SYNTHROID [Concomitant]
     Indication: THYROID DISORDER
     Dosage: UNK
  3. CYTOMEL [Concomitant]
     Indication: THYROID DISORDER
     Dosage: UNK

REACTIONS (11)
  - Abdominal abscess [Recovering/Resolving]
  - Pyrexia [Unknown]
  - Localised intraabdominal fluid collection [Recovered/Resolved]
  - Cellulitis staphylococcal [Recovering/Resolving]
  - Blood pressure decreased [Unknown]
  - Lethargy [Recovered/Resolved]
  - Weight decreased [Not Recovered/Not Resolved]
  - Fatigue [Recovered/Resolved]
  - Decreased appetite [Not Recovered/Not Resolved]
  - Injection site nodule [Not Recovered/Not Resolved]
  - Injection site pruritus [Not Recovered/Not Resolved]
